FAERS Safety Report 17836717 (Version 2)
Quarter: 2020Q2

REPORT INFORMATION
  Report Type: Report from Study
  Country: AU (occurrence: AU)
  Receive Date: 20200529
  Receipt Date: 20200610
  Transmission Date: 20200714
  Serious: Yes (Hospitalization, Other)
  Sender: FDA-Public Use
  Company Number: AU-REGENERON PHARMACEUTICALS, INC.-2020-36589

PATIENT

DRUGS (1)
  1. EYLEA [Suspect]
     Active Substance: AFLIBERCEPT
     Indication: NEOVASCULAR AGE-RELATED MACULAR DEGENERATION
     Dosage: DOSE, FREQUENCY AND TOTAL NUMBER OF DOSES NOT REPORTED
     Route: 031
     Dates: start: 20180725, end: 20180928

REACTIONS (11)
  - Blood sodium decreased [Recovered/Resolved]
  - Blood pressure fluctuation [Not Recovered/Not Resolved]
  - Malaise [Unknown]
  - Product dose omission [Unknown]
  - Headache [Unknown]
  - Dyspnoea [Unknown]
  - Headache [Recovered/Resolved]
  - Loss of consciousness [Recovered/Resolved]
  - Blood pressure inadequately controlled [Unknown]
  - Eye disorder [Recovering/Resolving]
  - Hypertension [Unknown]

NARRATIVE: CASE EVENT DATE: 201911
